FAERS Safety Report 13278917 (Version 2)
Quarter: 2017Q1

REPORT INFORMATION
  Report Type: Spontaneous
  Country: US (occurrence: US)
  Receive Date: 20170228
  Receipt Date: 20170310
  Transmission Date: 20170428
  Serious: Yes (Hospitalization, Other)
  Sender: FDA-Public Use
  Company Number: US-ASTRAZENECA-2017SE20109

PATIENT
  Age: 75 Year
  Sex: Female
  Weight: 45.4 kg

DRUGS (6)
  1. PREVENTIL [Concomitant]
     Dosage: AS REQUIRED
     Route: 055
     Dates: start: 2006
  2. ALBUTEROL. [Concomitant]
     Active Substance: ALBUTEROL
     Dosage: AS REQUIRED
     Route: 055
  3. ACCOLATE [Suspect]
     Active Substance: ZAFIRLUKAST
     Indication: ASTHMA
     Route: 048
     Dates: start: 2006
  4. COMBIVENT [Concomitant]
     Active Substance: ALBUTEROL SULFATE\IPRATROPIUM BROMIDE
     Dosage: 2 INHALATIONS EVERY 6 HOURS AS NEEDED.
     Route: 055
     Dates: start: 2006
  5. LASIX [Concomitant]
     Active Substance: FUROSEMIDE
     Indication: CARDIAC FAILURE CONGESTIVE
     Route: 048
     Dates: start: 2015
  6. SYMBICORT [Suspect]
     Active Substance: BUDESONIDE\FORMOTEROL FUMARATE DIHYDRATE
     Indication: CHRONIC OBSTRUCTIVE PULMONARY DISEASE
     Dosage: 160/4.5MCG, 2 INHALATIONS TWICE DAILY
     Route: 055
     Dates: start: 2006

REACTIONS (9)
  - Abnormal loss of weight [Unknown]
  - Gastritis [Unknown]
  - Dyspnoea [Unknown]
  - Device issue [Unknown]
  - Drug dose omission [Not Recovered/Not Resolved]
  - Cardiac failure congestive [Unknown]
  - Coeliac disease [Unknown]
  - Drug prescribing error [Not Recovered/Not Resolved]
  - Intentional product misuse [Unknown]

NARRATIVE: CASE EVENT DATE: 2006
